FAERS Safety Report 6009079-7 (Version None)
Quarter: 2008Q4

REPORT INFORMATION
  Report Type: 
  Country: None (occurrence: None)
  Receive Date: 20081216
  Receipt Date: 20081202
  Transmission Date: 20090506
  Serious: Yes (Other)
  Sender: FDA-Public Use
  Company Number: 2008AL012220

PATIENT
  Sex: Female

DRUGS (1)
  1. DIGOXIN [Suspect]
     Dosage: 0.25MG, DAILY, PO
     Route: 048
     Dates: start: 20070113

REACTIONS (6)
  - ABDOMINAL DISCOMFORT [None]
  - DIZZINESS [None]
  - DYSURIA [None]
  - FATIGUE [None]
  - FEELING COLD [None]
  - HEADACHE [None]
